FAERS Safety Report 19420894 (Version 1)
Quarter: 2021Q2

REPORT INFORMATION
  Report Type: Spontaneous
  Country: US (occurrence: US)
  Receive Date: 20210616
  Receipt Date: 20210616
  Transmission Date: 20210717
  Serious: No
  Sender: FDA-Public Use
  Company Number: US-ELI_LILLY_AND_COMPANY-US202106002764

PATIENT
  Sex: Male

DRUGS (1)
  1. TRULICITY [Suspect]
     Active Substance: DULAGLUTIDE
     Indication: TYPE 2 DIABETES MELLITUS
     Dosage: UNK UNK, UNKNOWN
     Route: 058
     Dates: start: 2019

REACTIONS (10)
  - Limb injury [Recovering/Resolving]
  - Glycosylated haemoglobin abnormal [Unknown]
  - Gait disturbance [Unknown]
  - Weight fluctuation [Unknown]
  - Asthenia [Recovering/Resolving]
  - Memory impairment [Unknown]
  - Limb discomfort [Unknown]
  - Peripheral swelling [Unknown]
  - Blood glucose increased [Not Recovered/Not Resolved]
  - Foot fracture [Unknown]
